FAERS Safety Report 5583393-1 (Version None)
Quarter: 2007Q4

REPORT INFORMATION
  Report Type: 
  Country: None (occurrence: None)
  Receive Date: 20071231
  Receipt Date: 20071219
  Transmission Date: 20080405
  Serious: No
  Sender: FDA-Public Use
  Company Number: TPA2007A02533

PATIENT
  Age: 48 Year
  Sex: Male
  Weight: 79.3795 kg

DRUGS (4)
  1. ROZEREM [Suspect]
     Indication: INSOMNIA
     Dosage: 8 MG, HS, PER ORAL, CUT IN HALF HS, PER ORAL
     Route: 048
     Dates: start: 20071207, end: 20071201
  2. ROZEREM [Suspect]
     Indication: INSOMNIA
     Dosage: 8 MG, HS, PER ORAL, CUT IN HALF HS, PER ORAL
     Route: 048
     Dates: start: 20071201, end: 20071217
  3. AMBIEN CZ (ZOLPIDEM TARTRATE) [Concomitant]
  4. SUBOXONE (NALOXONE, BUPRENORPHINE) [Concomitant]

REACTIONS (6)
  - DRUG EFFECT INCREASED [None]
  - EJACULATION FAILURE [None]
  - ERECTILE DYSFUNCTION [None]
  - HYPERSOMNIA [None]
  - POOR QUALITY SLEEP [None]
  - SOMNOLENCE [None]
